FAERS Safety Report 9467925 (Version 2)
Quarter: 2013Q3

REPORT INFORMATION
  Report Type: Spontaneous
  Country: BE (occurrence: BE)
  Receive Date: 20130821
  Receipt Date: 20130821
  Transmission Date: 20140515
  Serious: Yes (Other)
  Sender: FDA-Public Use
  Company Number: BE-ASTRAZENECA-2013SE52017

PATIENT
  Age: 23 Year
  Sex: Female
  Weight: 80 kg

DRUGS (3)
  1. SEROQUEL [Suspect]
     Indication: PRODUCT USED FOR UNKNOWN INDICATION
     Dosage: 100 MG AS HALF TABLET OF 200 MG, FOUR TIMES A DAY (TOTAL DAILY DOSE 400 MG)
     Route: 048
     Dates: start: 201211, end: 20130214
  2. SEROQUEL [Suspect]
     Indication: PRODUCT USED FOR UNKNOWN INDICATION
     Route: 048
     Dates: start: 20130214
  3. ORAP [Suspect]

REACTIONS (6)
  - Blood testosterone increased [Not Recovered/Not Resolved]
  - Blood cholesterol increased [Recovered/Resolved]
  - Weight increased [Unknown]
  - Amenorrhoea [Recovered/Resolved]
  - Off label use [Not Recovered/Not Resolved]
  - Off label use [Recovered/Resolved]
